FAERS Safety Report 5794919-7 (Version None)
Quarter: 2008Q2

REPORT INFORMATION
  Report Type: 
  Country: None (occurrence: None)
  Receive Date: 20080627
  Receipt Date: 20080627
  Transmission Date: 20081010
  Serious: No
  Sender: FDA-Public Use
  Company Number: None

PATIENT
  Sex: Male

DRUGS (1)
  1. PEGASYS [Suspect]
     Indication: HEPATITIS C
     Dosage: PEGASYS WEEKLY SQ
     Route: 058
     Dates: start: 20080229, end: 20080229

REACTIONS (3)
  - FATIGUE [None]
  - FEELING ABNORMAL [None]
  - WEIGHT DECREASED [None]
